FAERS Safety Report 11204819 (Version 1)
Quarter: 2015Q2

REPORT INFORMATION
  Report Type: Report from Study
  Country: US (occurrence: US)
  Receive Date: 20150622
  Receipt Date: 20150622
  Transmission Date: 20150821
  Serious: Yes (Other)
  Sender: FDA-Public Use
  Company Number: US-ROCHE-1204182

PATIENT
  Sex: Female

DRUGS (4)
  1. BEVACIZUMAB [Suspect]
     Active Substance: BEVACIZUMAB
     Indication: OVARIAN CANCER
  2. BEVACIZUMAB [Suspect]
     Active Substance: BEVACIZUMAB
     Indication: ENDOMETRIAL CANCER RECURRENT
     Route: 065
  3. IXABEPILONE [Suspect]
     Active Substance: IXABEPILONE
     Indication: ENDOMETRIAL CANCER RECURRENT
     Dosage: 16-20 MG/M2 WEEKLY ON DAYS 1,8, 15 OF A 28 DAY CYCLE
     Route: 065
  4. IXABEPILONE [Suspect]
     Active Substance: IXABEPILONE
     Indication: OVARIAN CANCER

REACTIONS (14)
  - Mucosal inflammation [Unknown]
  - Vomiting [Unknown]
  - Proteinuria [Unknown]
  - Diarrhoea [Unknown]
  - Rhinorrhoea [Unknown]
  - Seizure [Unknown]
  - Epistaxis [Unknown]
  - Decreased appetite [Unknown]
  - Arthralgia [Unknown]
  - Neuropathy peripheral [Unknown]
  - Thrombocytopenia [Unknown]
  - Dry skin [Unknown]
  - Hypertension [Unknown]
  - Constipation [Unknown]
